FAERS Safety Report 5327560-0 (Version None)
Quarter: 2007Q2

REPORT INFORMATION
  Report Type: 
  Country: None (occurrence: None)
  Receive Date: 20070517
  Receipt Date: 20070112
  Transmission Date: 20071010
  Serious: Yes (Hospitalization, Other)
  Sender: FDA-Public Use
  Company Number: US-JNJFOC-20070103513

PATIENT
  Age: 43 Year
  Sex: Female

DRUGS (2)
  1. TRAMADOL HCL [Suspect]
     Indication: DRUG USE FOR UNKNOWN INDICATION
     Route: 048
  2. PREGABALIN [Suspect]
     Indication: DRUG USE FOR UNKNOWN INDICATION

REACTIONS (6)
  - AGGRESSION [None]
  - DYSKINESIA [None]
  - GAIT DISTURBANCE [None]
  - LETHARGY [None]
  - MULTIPLE DRUG OVERDOSE [None]
  - PALPITATIONS [None]
